FAERS Safety Report 18163338 (Version 1)
Quarter: 2020Q3

REPORT INFORMATION
  Report Type: Spontaneous
  Country: NL (occurrence: NL)
  Receive Date: 20200818
  Receipt Date: 20200818
  Transmission Date: 20201103
  Serious: Yes (Other)
  Sender: FDA-Public Use
  Company Number: NL-ACCORD-195565

PATIENT
  Sex: Female
  Weight: 58 kg

DRUGS (2)
  1. SERTRALINE [Suspect]
     Active Substance: SERTRALINE HYDROCHLORIDE
     Indication: PANIC ATTACK
     Dosage: TABLET 100MG,1 X1 PIECE
     Dates: start: 20200513, end: 20200728
  2. LIVIAL [Concomitant]
     Active Substance: TIBOLONE
     Dosage: TABLET, 2,5 MG

REACTIONS (1)
  - Urinary retention [Recovering/Resolving]
